FAERS Safety Report 21906559 (Version 1)
Quarter: 2023Q1

REPORT INFORMATION
  Report Type: Spontaneous
  Country: US (occurrence: US)
  Receive Date: 20230125
  Receipt Date: 20230125
  Transmission Date: 20230417
  Serious: Yes (Hospitalization, Other)
  Sender: FDA-Public Use
  Company Number: US-KVK-TECH, INC-20230100006

PATIENT
  Age: 51 Year
  Sex: Female

DRUGS (1)
  1. PHENTERMINE HYDROCHLORIDE [Suspect]
     Active Substance: PHENTERMINE HYDROCHLORIDE
     Indication: Weight decreased
     Dosage: UNK, UNKNOWN
     Route: 065

REACTIONS (1)
  - Acute myocardial infarction [Recovered/Resolved]
